FAERS Safety Report 11458805 (Version 1)
Quarter: 2015Q3

REPORT INFORMATION
  Report Type: Spontaneous
  Country: IE (occurrence: IE)
  Receive Date: 20150904
  Receipt Date: 20150904
  Transmission Date: 20151125
  Serious: Yes (Other)
  Sender: FDA-Public Use
  Company Number: IE-PFIZER INC-2015284862

PATIENT
  Age: 48 Year
  Sex: Male

DRUGS (2)
  1. MEDROXYPROGESTERONE ACETATE. [Suspect]
     Active Substance: MEDROXYPROGESTERONE ACETATE
     Indication: TRANSGENDER HORMONAL THERAPY
     Dosage: 150 MG, CYCLIC (EVERY 2 WEEKS)
  2. ESTRADIOL VALERATE. [Suspect]
     Active Substance: ESTRADIOL VALERATE
     Indication: TRANSGENDER HORMONAL THERAPY
     Dosage: 30 MG, CYCLIC (EVERY 2 WEEKS)

REACTIONS (4)
  - Pulmonary embolism [Unknown]
  - Product use issue [Unknown]
  - Cerebral infarction [Unknown]
  - Carotid artery occlusion [Unknown]
